FAERS Safety Report 20128758 (Version 3)
Quarter: 2022Q3

REPORT INFORMATION
  Report Type: Spontaneous
  Country: PT (occurrence: PT)
  Receive Date: 20211130
  Receipt Date: 20220919
  Transmission Date: 20221027
  Serious: Yes (Death, Other)
  Sender: FDA-Public Use
  Company Number: PT-CELLTRION INC.-2021PT016026

PATIENT

DRUGS (2)
  1. RITUXIMAB [Suspect]
     Active Substance: RITUXIMAB
     Indication: Castleman^s disease
     Dosage: UNK
  2. METHYLPREDNISOLONE [Suspect]
     Active Substance: METHYLPREDNISOLONE
     Indication: Castleman^s disease
     Dosage: HIGH DOSE

REACTIONS (7)
  - Death [Fatal]
  - Condition aggravated [Unknown]
  - Blood disorder [Unknown]
  - Pancytopenia [Unknown]
  - Multiple organ dysfunction syndrome [Unknown]
  - Off label use [Unknown]
  - Drug ineffective for unapproved indication [Unknown]
